FAERS Safety Report 9012499 (Version 1)
Quarter: 2013Q1

REPORT INFORMATION
  Report Type: Spontaneous
  Country: US (occurrence: US)
  Receive Date: 20130114
  Receipt Date: 20130114
  Transmission Date: 20140127
  Serious: No
  Sender: FDA-Public Use
  Company Number: US-PFIZER INC-2013014304

PATIENT
  Age: 48 Year
  Sex: Female
  Weight: 83.9 kg

DRUGS (3)
  1. NEURONTIN [Suspect]
     Indication: NERVE INJURY
     Dosage: UNK
     Dates: start: 2000
  2. NEURONTIN [Suspect]
     Indication: PAIN
     Dosage: 600 MG, UNK(FOUR TO FIVE TIMES A DAY)
     Dates: start: 2002
  3. NEURONTIN [Suspect]
     Dosage: 3600 MG, DAILY
     Dates: end: 2010

REACTIONS (10)
  - Dysgraphia [Unknown]
  - Weight increased [Unknown]
  - Feeling abnormal [Unknown]
  - Muscle twitching [Unknown]
  - Tremor [Unknown]
  - Gait disturbance [Unknown]
  - Dysstasia [Unknown]
  - Somnolence [Unknown]
  - Dysphemia [Unknown]
  - Drug ineffective [Unknown]
